FAERS Safety Report 7775134-4 (Version None)
Quarter: 2011Q3

REPORT INFORMATION
  Report Type: 
  Country: None (occurrence: None)
  Receive Date: 20110921
  Receipt Date: 20110801
  Transmission Date: 20111222
  Serious: Yes (Other)
  Sender: FDA-Public Use
  Company Number: 2011P1007608

PATIENT
  Age: 84 Year
  Sex: Female

DRUGS (9)
  1. POTASSIUM [Concomitant]
  2. ASCORBIC ACID [Concomitant]
  3. WARFARIN SODIUM [Suspect]
     Indication: DEEP VEIN THROMBOSIS
     Dosage: 6 MG; 3 DAYS/WK; PO, 9 MG; 4 DAYS/WK;PO, 9 MG; 6 DAYS/WK; PO, 6 MG; ONCE WEEKLY; PO
     Route: 048
     Dates: start: 20110518
  4. WARFARIN SODIUM [Suspect]
     Indication: DEEP VEIN THROMBOSIS
     Dosage: 6 MG; 3 DAYS/WK; PO, 9 MG; 4 DAYS/WK;PO, 9 MG; 6 DAYS/WK; PO, 6 MG; ONCE WEEKLY; PO
     Route: 048
     Dates: start: 20100801, end: 20110518
  5. WARFARIN SODIUM [Suspect]
     Indication: DEEP VEIN THROMBOSIS
     Dosage: 6 MG; 3 DAYS/WK; PO, 9 MG; 4 DAYS/WK;PO, 9 MG; 6 DAYS/WK; PO, 6 MG; ONCE WEEKLY; PO
     Route: 048
     Dates: start: 20100801, end: 20110518
  6. WARFARIN SODIUM [Suspect]
     Indication: DEEP VEIN THROMBOSIS
     Dosage: 6 MG; 3 DAYS/WK; PO, 9 MG; 4 DAYS/WK;PO, 9 MG; 6 DAYS/WK; PO, 6 MG; ONCE WEEKLY; PO
     Route: 048
     Dates: start: 20110518
  7. LASIX [Concomitant]
  8. FOLIC ACID [Concomitant]
  9. VITAMIN D [Concomitant]

REACTIONS (12)
  - LUNG NEOPLASM MALIGNANT [None]
  - ADRENAL MASS [None]
  - GRANULOMATOUS LIVER DISEASE [None]
  - PLEURAL EFFUSION [None]
  - METASTASES TO ADRENALS [None]
  - SPLENIC GRANULOMA [None]
  - LYMPH NODE CALCIFICATION [None]
  - REFUSAL OF TREATMENT BY PATIENT [None]
  - METASTASES TO BONE [None]
  - LUNG CONSOLIDATION [None]
  - NEPHROLITHIASIS [None]
  - INTERNATIONAL NORMALISED RATIO DECREASED [None]
